FAERS Safety Report 15534293 (Version 2)
Quarter: 2018Q4

REPORT INFORMATION
  Report Type: Report from Study
  Country: None (occurrence: TR)
  Receive Date: 20181021
  Receipt Date: 20181105
  Transmission Date: 20190205
  Serious: Yes (Other)
  Sender: FDA-Public Use
  Company Number: TR-ABBVIE-18S-161-2523923-00

PATIENT
  Age: 81 Year
  Sex: Female
  Weight: 54 kg

DRUGS (5)
  1. PK-MERZ [Concomitant]
     Active Substance: AMANTADINE
     Indication: PARKINSON^S DISEASE
     Route: 048
     Dates: start: 2015
  2. DUODOPA [Suspect]
     Active Substance: CARBIDOPA\LEVODOPA
     Dosage: MD: 3.70 ML, CD: 2.20 ML, ED: 0.50 ML
     Route: 050
     Dates: start: 20181017
  3. CEDRINA [Concomitant]
     Indication: DEPRESSION
     Route: 048
     Dates: start: 2017
  4. DUODOPA [Suspect]
     Active Substance: CARBIDOPA\LEVODOPA
     Indication: PARKINSON^S DISEASE
     Dosage: MD: 3.70 ML, CD: 2.00 ML, ED: 0.50 ML
     Route: 050
     Dates: start: 20180612, end: 20181017
  5. MADOPAR HBS [Concomitant]
     Active Substance: BENSERAZIDE HYDROCHLORIDE\LEVODOPA
     Indication: PARKINSON^S DISEASE
     Route: 048
     Dates: start: 2017

REACTIONS (4)
  - Stoma site infection [Recovered/Resolved]
  - Medical device site infection [Not Recovered/Not Resolved]
  - Medical device site abscess [Recovered/Resolved]
  - Bradykinesia [Recovered/Resolved]

NARRATIVE: CASE EVENT DATE: 2018
